FAERS Safety Report 9416330 (Version 1)
Quarter: 2013Q3

REPORT INFORMATION
  Report Type: Spontaneous
  Country: US (occurrence: None)
  Receive Date: 20130718
  Receipt Date: 20130718
  Transmission Date: 20140515
  Serious: Yes (Other)
  Sender: FDA-Public Use
  Company Number: JPI-P-033575

PATIENT
  Sex: Male
  Weight: 113.4 kg

DRUGS (2)
  1. XYREM [Suspect]
     Indication: INSOMNIA
     Dosage: 9 GM (4.5GM, 2 IN 1 D) ORAL
     Route: 048
     Dates: start: 20050818
  2. PAIN MEDICATIONS [Concomitant]

REACTIONS (2)
  - Spinal fusion surgery [None]
  - Back pain [None]
